FAERS Safety Report 10753663 (Version 1)
Quarter: 2015Q1

REPORT INFORMATION
  Report Type: Report from Study
  Country: IL (occurrence: IL)
  Receive Date: 20150201
  Receipt Date: 20150201
  Transmission Date: 20150721
  Serious: Yes (Other)
  Sender: FDA-Public Use
  Company Number: PHHY2014IL054022

PATIENT
  Age: 61 Year
  Sex: Female
  Weight: 69.5 kg

DRUGS (4)
  1. TASIGNA [Suspect]
     Active Substance: NILOTINIB
     Indication: CHRONIC MYELOID LEUKAEMIA
     Dosage: 200 MG, BID
     Route: 048
     Dates: start: 20131220
  2. TASIGNA [Suspect]
     Active Substance: NILOTINIB
     Dosage: UNK
     Route: 048
  3. TASIGNA [Suspect]
     Active Substance: NILOTINIB
     Dosage: 150 MG, BID
     Route: 048
     Dates: start: 201407
  4. CRESTOR [Concomitant]
     Active Substance: ROSUVASTATIN CALCIUM
     Indication: BLOOD CHOLESTEROL INCREASED
     Dosage: UNK UKN, UNK
     Route: 065

REACTIONS (8)
  - Dyspnoea [Not Recovered/Not Resolved]
  - Chest pain [Not Recovered/Not Resolved]
  - Blood glucose increased [Not Recovered/Not Resolved]
  - Constipation [Recovered/Resolved]
  - Constipation [Not Recovered/Not Resolved]
  - Off label use [Unknown]
  - Angina pectoris [Not Recovered/Not Resolved]
  - Hypertension [Unknown]

NARRATIVE: CASE EVENT DATE: 20150121
